FAERS Safety Report 20332455 (Version 1)
Quarter: 2022Q1

REPORT INFORMATION
  Report Type: Spontaneous
  Country: US (occurrence: US)
  Receive Date: 20220113
  Receipt Date: 20220113
  Transmission Date: 20220423
  Serious: Yes (Other)
  Sender: FDA-Public Use
  Company Number: US-ORGANON-O2201USA000554

PATIENT
  Sex: Male

DRUGS (2)
  1. PROPECIA [Suspect]
     Active Substance: FINASTERIDE
     Dosage: 1.25 MG, EVERYDAY (QD)
     Route: 048
     Dates: start: 202111, end: 202201
  2. PROPECIA [Suspect]
     Active Substance: FINASTERIDE
     Dosage: 1.25 MILLIGRAM, EVERY OTHER DAY (QOD)
     Route: 048
     Dates: start: 202201

REACTIONS (6)
  - Erectile dysfunction [Unknown]
  - Depression [Unknown]
  - Anxiety [Unknown]
  - Incorrect dose administered [Unknown]
  - Intentional product misuse [Unknown]
  - Product prescribing issue [Unknown]

NARRATIVE: CASE EVENT DATE: 20211101
